FAERS Safety Report 11727042 (Version 2)
Quarter: 2015Q4

REPORT INFORMATION
  Report Type: Report from Study
  Country: US (occurrence: US)
  Receive Date: 20151112
  Receipt Date: 20151202
  Transmission Date: 20160304
  Serious: Yes (Other)
  Sender: FDA-Public Use
  Company Number: US-BIOGENIDEC-2015BI148173

PATIENT
  Age: 38 Year
  Sex: Female

DRUGS (3)
  1. TYSABRI [Suspect]
     Active Substance: NATALIZUMAB
     Indication: MULTIPLE SCLEROSIS
     Route: 042
     Dates: start: 20150206
  2. TYSABRI [Suspect]
     Active Substance: NATALIZUMAB
     Indication: MULTIPLE SCLEROSIS
     Route: 042
  3. BENADRYL [Concomitant]
     Active Substance: DIPHENHYDRAMINE HYDROCHLORIDE
     Indication: PREMEDICATION

REACTIONS (7)
  - Seizure [Unknown]
  - Panic attack [Recovered/Resolved]
  - Disorientation [Recovered/Resolved]
  - Fatigue [Recovered/Resolved]
  - Vertigo [Recovered/Resolved]
  - Dizziness [Recovered/Resolved]
  - Chest pain [Recovered/Resolved]

NARRATIVE: CASE EVENT DATE: 20150206
